FAERS Safety Report 10149193 (Version 1)
Quarter: 2014Q2

REPORT INFORMATION
  Report Type: Spontaneous
  Country: US (occurrence: None)
  Receive Date: 20140501
  Receipt Date: 20140501
  Transmission Date: 20141212
  Serious: No
  Sender: FDA-Public Use
  Company Number: None

PATIENT
  Age: 71 Year
  Sex: Female
  Weight: 52.7 kg

DRUGS (10)
  1. FORTEO [Suspect]
     Indication: PRODUCT USED FOR UNKNOWN INDICATION
     Route: 058
     Dates: start: 20130201
  2. FENTANYL [Concomitant]
  3. SIMVASTATIN [Concomitant]
  4. RESTORIL [Concomitant]
  5. OMEPRAZOLE [Concomitant]
  6. LEVOTHYROXINE [Concomitant]
  7. PROZAC [Concomitant]
  8. GABAPENTIN [Concomitant]
  9. TRAMADOL [Concomitant]
  10. METOPROLOL [Concomitant]

REACTIONS (2)
  - Product packaging quantity issue [None]
  - Product packaging issue [None]
